FAERS Safety Report 5874558-X (Version None)
Quarter: 2008Q3

REPORT INFORMATION
  Report Type: 
  Country: None (occurrence: None)
  Receive Date: 20080909
  Receipt Date: 20080904
  Transmission Date: 20090109
  Serious: Yes (Death, Hospitalization, Other)
  Sender: FDA-Public Use
  Company Number: PHHY2008JP13622

PATIENT
  Age: 76 Year
  Sex: Male

DRUGS (3)
  1. TEGRETOL [Suspect]
     Indication: EPILEPSY
     Dosage: 200 MG/DAY
     Route: 048
     Dates: start: 20070711, end: 20070812
  2. HYDANTOL [Concomitant]
     Dosage: UNK
     Dates: end: 20070710
  3. SEROQUEL [Concomitant]
     Dosage: 100 MG UNK
     Dates: start: 20070711, end: 20070812

REACTIONS (16)
  - ABDOMINAL PAIN [None]
  - ASCITES [None]
  - BACTERIAL DISEASE CARRIER [None]
  - CHOLECYSTECTOMY [None]
  - CONDITION AGGRAVATED [None]
  - CYTOMEGALOVIRUS INFECTION [None]
  - DRUG RASH WITH EOSINOPHILIA AND SYSTEMIC SYMPTOMS [None]
  - GENERAL PHYSICAL HEALTH DETERIORATION [None]
  - IMPAIRED HEALING [None]
  - OEDEMA [None]
  - PERITONEAL LAVAGE [None]
  - PERITONITIS [None]
  - PLEURAL EFFUSION [None]
  - PURPURA [None]
  - RASH [None]
  - WOUND INFECTION STAPHYLOCOCCAL [None]
